FAERS Safety Report 9252515 (Version 3)
Quarter: 2013Q3

REPORT INFORMATION
  Report Type: Spontaneous
  Country: PT (occurrence: PT)
  Receive Date: 20130424
  Receipt Date: 20130829
  Transmission Date: 20140515
  Serious: Yes (Other)
  Sender: FDA-Public Use
  Company Number: PT-GILEAD-2013-0073907

PATIENT
  Age: 30 Year
  Sex: Female

DRUGS (7)
  1. TRUVADA [Suspect]
     Indication: HIV INFECTION
     Dosage: 1 DF, QD
     Route: 048
     Dates: start: 200809
  2. LOPINAVIR W/RITONAVIR [Concomitant]
     Indication: HIV INFECTION
     Dosage: UNK
     Dates: end: 201110
  3. TRAZODONE [Concomitant]
     Indication: DEPRESSION
     Dosage: 50 MG, QD
  4. ALPRAZOLAM [Concomitant]
     Indication: DEPRESSION
     Dosage: 0.25 MG, TID
  5. RISPERIDONE [Concomitant]
     Indication: DEPRESSION
     Dosage: 1 MG, QD
  6. FLUOXETINE [Concomitant]
     Indication: DEPRESSION
     Dosage: 20 MG, QD
  7. MIRTAZAPINE [Concomitant]
     Indication: DEPRESSION
     Dosage: 15 MG, QD

REACTIONS (1)
  - Abortion spontaneous [Recovered/Resolved]
